FAERS Safety Report 8308692-1 (Version None)
Quarter: 2012Q2

REPORT INFORMATION
  Report Type: 
  Country: None (occurrence: None)
  Receive Date: 20120420
  Receipt Date: 20120411
  Transmission Date: 20120825
  Serious: Yes (Hospitalization)
  Sender: FDA-Public Use
  Company Number: WAES 1203USA00357

PATIENT
  Age: 73 Year
  Sex: Male

DRUGS (4)
  1. ACTOS [Concomitant]
  2. MEIACT [Concomitant]
  3. JANUVIA [Suspect]
     Indication: TYPE 2 DIABETES MELLITUS
     Dosage: 25 MG, DAILY, PO
     Route: 048
     Dates: start: 20110122, end: 20110307
  4. ACETAMINOPHEN [Concomitant]

REACTIONS (15)
  - ANAEMIA [None]
  - BLOOD GLUCOSE DECREASED [None]
  - PYREXIA [None]
  - URETERIC CANCER [None]
  - DIABETIC RETINOPATHY [None]
  - BRONCHITIS [None]
  - UPPER RESPIRATORY TRACT INFLAMMATION [None]
  - INSOMNIA [None]
  - PHARYNGITIS [None]
  - CATARACT [None]
  - DIABETIC NEPHROPATHY [None]
  - HEADACHE [None]
  - BLADDER NEOPLASM [None]
  - ARTHRALGIA [None]
  - MALAISE [None]
